FAERS Safety Report 6998020-6 (Version None)
Quarter: 2010Q3

REPORT INFORMATION
  Report Type: 
  Country: None (occurrence: None)
  Receive Date: 20100920
  Receipt Date: 20100701
  Transmission Date: 20110219
  Serious: No
  Sender: FDA-Public Use
  Company Number: US-ASTRAZENECA-2007UW21516

PATIENT
  Age: 18857 Day
  Sex: Male
  Weight: 112 kg

DRUGS (18)
  1. SEROQUEL [Suspect]
     Indication: ANXIETY
     Dosage: 100-300 MG
     Route: 048
     Dates: start: 19970701, end: 20040101
  2. SEROQUEL [Suspect]
     Indication: DEPRESSION
     Dosage: 100-300 MG
     Route: 048
     Dates: start: 19970701, end: 20040101
  3. SEROQUEL [Suspect]
     Dosage: 25 MG - 300 MG
     Route: 048
     Dates: start: 20001024
  4. SEROQUEL [Suspect]
     Dosage: 25 MG - 300 MG
     Route: 048
     Dates: start: 20001024
  5. ATIVAN [Concomitant]
     Dates: start: 20001024
  6. CLONAZEPAM [Concomitant]
     Dates: start: 20001024
  7. PAXIL [Concomitant]
     Dates: start: 20001024
  8. PREVACID [Concomitant]
     Dates: start: 20001024
  9. VICODIN [Concomitant]
     Dosage: 1 TABLET TWO TIMES A DAY
     Route: 048
     Dates: start: 20030205
  10. MAVIK [Concomitant]
     Dates: start: 20030205
  11. REMERON [Concomitant]
     Dates: start: 20030205
  12. HUMULIN R [Concomitant]
     Dosage: 28 UNIT AM, 22 UNIT PM
     Dates: start: 20050117
  13. XANAX [Concomitant]
     Dates: start: 20030205
  14. ZOCOR [Concomitant]
     Route: 048
     Dates: start: 20050117
  15. CYMBALTA [Concomitant]
     Dates: start: 20050117
  16. GLUCOPHAGE [Concomitant]
     Dates: start: 20010718
  17. LIPITOR [Concomitant]
     Dates: start: 20010718
  18. TRAZODONE HCL [Concomitant]
     Indication: DEPRESSION
     Dates: start: 19970711

REACTIONS (5)
  - BLOOD CHOLESTEROL INCREASED [None]
  - HYPERGLYCAEMIA [None]
  - OBESITY [None]
  - TYPE 1 DIABETES MELLITUS [None]
  - TYPE 2 DIABETES MELLITUS [None]
